FAERS Safety Report 7212225-0 (Version None)
Quarter: 2011Q1

REPORT INFORMATION
  Report Type: 
  Country: None (occurrence: None)
  Receive Date: 20110106
  Receipt Date: 20101228
  Transmission Date: 20110831
  Serious: Yes (Death, Other)
  Sender: FDA-Public Use
  Company Number: JP-JNJFOC-20110100130

PATIENT
  Age: 55 Year
  Sex: Female

DRUGS (4)
  1. MICAFUNGIN [Suspect]
     Indication: OBLITERATIVE BRONCHIOLITIS
     Route: 065
  2. ITRACONAZOLE [Suspect]
     Indication: OBLITERATIVE BRONCHIOLITIS
     Route: 065
  3. MICAFUNGIN [Suspect]
     Indication: BRONCHOPULMONARY ASPERGILLOSIS
     Route: 065
  4. ITRACONAZOLE [Suspect]
     Indication: BRONCHOPULMONARY ASPERGILLOSIS
     Route: 065

REACTIONS (2)
  - DRUG INEFFECTIVE [None]
  - BRONCHOPULMONARY ASPERGILLOSIS [None]
